FAERS Safety Report 7379836-3 (Version None)
Quarter: 2011Q1

REPORT INFORMATION
  Report Type: 
  Country: None (occurrence: None)
  Receive Date: 20110324
  Receipt Date: 20110324
  Transmission Date: 20110831
  Serious: Yes (Death)
  Sender: FDA-Public Use
  Company Number: None

PATIENT
  Age: 75 Year
  Sex: Male

DRUGS (11)
  1. DIGOXIN [Concomitant]
  2. LEVOTHROID [Concomitant]
  3. ONDANSETRON [Concomitant]
  4. GABAPENTIN [Concomitant]
  5. ASPIRIN [Concomitant]
  6. REVLIMID [Suspect]
     Indication: MULTIPLE MYELOMA
     Dosage: 25MG DAILY ORALLY
     Route: 048
     Dates: start: 20091201, end: 20100401
  7. TAMSULOSIN HCL [Concomitant]
  8. FLUOXETINE [Concomitant]
  9. FIECAINIDE [Concomitant]
  10. NEPHROVITE [Concomitant]
  11. LACTULOSE [Concomitant]

REACTIONS (5)
  - DISEASE PROGRESSION [None]
  - HYPERCALCAEMIA [None]
  - PLASMACYTOMA [None]
  - MENTAL STATUS CHANGES [None]
  - DISEASE RECURRENCE [None]
